FAERS Safety Report 4308793-9 (Version None)
Quarter: 2004Q1

REPORT INFORMATION
  Report Type: 
  Country: None (occurrence: None)
  Receive Date: 20040227
  Receipt Date: 20040217
  Transmission Date: 20041129
  Serious: Yes (Hospitalization)
  Sender: FDA-Public Use
  Company Number: 03P-008-0217392-00

PATIENT
  Age: 40 Year
  Sex: Male

DRUGS (13)
  1. NORVIR [Suspect]
     Indication: HIV INFECTION
     Dosage: 2 - 100 MILLIGRAM TABLETS, TWICE A DAY, PER ORAL
     Route: 048
     Dates: start: 20030326
  2. EFAVIRENZ [Concomitant]
  3. TENOFOVIR [Concomitant]
  4. ENFUVIRTIDE [Concomitant]
  5. BACTRIM [Concomitant]
  6. FLUCONAZOLE [Concomitant]
  7. VALACYCLOVIR HCL [Concomitant]
  8. IMODIUM [Concomitant]
  9. ERYTHROPOETIN [Concomitant]
  10. TERBUTALINE SULFATE [Concomitant]
  11. MAGNESIUM ASPARTATE [Concomitant]
  12. TIPRANAVIR [Concomitant]
  13. MYCOLOG [Concomitant]

REACTIONS (6)
  - ABSCESS NECK [None]
  - DISEASE RECURRENCE [None]
  - IMMUNE RECONSTITUTION SYNDROME [None]
  - LYMPHADENOPATHY [None]
  - MYCOBACTERIAL INFECTION [None]
  - WOUND SECRETION [None]
